FAERS Safety Report 18372337 (Version 5)
Quarter: 2021Q2

REPORT INFORMATION
  Report Type: Spontaneous
  Country: US (occurrence: US)
  Receive Date: 20201012
  Receipt Date: 20210429
  Transmission Date: 20210717
  Serious: Yes (Hospitalization)
  Sender: FDA-Public Use
  Company Number: US-PFIZER INC-2020391194

PATIENT
  Age: 51 Year
  Sex: Female

DRUGS (3)
  1. XELJANZ [Suspect]
     Active Substance: TOFACITINIB CITRATE
     Indication: RHEUMATOID ARTHRITIS
     Dosage: 5 MG
     Dates: start: 20200911
  2. XELJANZ [Suspect]
     Active Substance: TOFACITINIB CITRATE
     Dosage: 5 MG, 2X/DAY
     Dates: start: 20200912, end: 20210331
  3. COVID?19 VACCINE NOS. [Concomitant]
     Active Substance: COVID-19 VACCINE NOS
     Dosage: UNK
     Dates: start: 20210324

REACTIONS (9)
  - Drug ineffective [Unknown]
  - Pain [Unknown]
  - Product dose omission in error [Unknown]
  - COVID-19 [Unknown]
  - Therapeutic response unexpected [Unknown]
  - Weight increased [Unknown]
  - Arthralgia [Unknown]
  - Fluid retention [Unknown]
  - Sensitivity to weather change [Unknown]

NARRATIVE: CASE EVENT DATE: 2020
